FAERS Safety Report 21200770 (Version 4)
Quarter: 2022Q3

REPORT INFORMATION
  Report Type: Report from Study
  Country: US (occurrence: US)
  Receive Date: 20220811
  Receipt Date: 20220914
  Transmission Date: 20221026
  Serious: No
  Sender: FDA-Public Use
  Company Number: US-BIOVITRUM-2022US09250

PATIENT
  Sex: Female

DRUGS (12)
  1. KINERET [Suspect]
     Active Substance: ANAKINRA
     Indication: Product used for unknown indication
     Dates: start: 20220801
  2. FISH OIL [Concomitant]
     Active Substance: FISH OIL
  3. TYLENOL [Concomitant]
     Active Substance: ACETAMINOPHEN
  4. LEFLUNOMIDE [Concomitant]
     Active Substance: LEFLUNOMIDE
  5. ATORVASTATIN [Concomitant]
     Active Substance: ATORVASTATIN
  6. CANDESARTAN [Concomitant]
     Active Substance: CANDESARTAN
  7. FOLIC ACID [Concomitant]
     Active Substance: FOLIC ACID
  8. CLINDAMYCIN [Concomitant]
     Active Substance: CLINDAMYCIN
  9. VITAMINS [Concomitant]
     Active Substance: VITAMINS
  10. CALCIUM\CHOLECALCIFEROL [Concomitant]
     Active Substance: CALCIUM\CHOLECALCIFEROL
  11. PREDNISONE [Concomitant]
     Active Substance: PREDNISONE
  12. HYDROCHLOROTHIAZIDE [Concomitant]
     Active Substance: HYDROCHLOROTHIAZIDE

REACTIONS (8)
  - Fatigue [Unknown]
  - Loss of personal independence in daily activities [Unknown]
  - Injection site pain [Unknown]
  - Injection site mass [Unknown]
  - Injection site pruritus [Unknown]
  - Injection site reaction [Unknown]
  - Injection site erythema [Unknown]
  - Drug ineffective [Unknown]
